FAERS Safety Report 9650872 (Version 6)
Quarter: 2014Q1

REPORT INFORMATION
  Report Type: Report from Study
  Country: NL (occurrence: NL)
  Receive Date: 20131029
  Receipt Date: 20140324
  Transmission Date: 20141002
  Serious: Yes (Other)
  Sender: FDA-Public Use
  Company Number: NL-JNJFOC-20131014637

PATIENT
  Age: 54 Year
  Sex: Male
  Weight: 98.8 kg

DRUGS (2)
  1. USTEKINUMAB [Suspect]
     Indication: PSORIASIS
     Route: 058
     Dates: start: 20110328, end: 20130207
  2. USTEKINUMAB [Suspect]
     Indication: PSORIASIS
     Route: 058
     Dates: start: 20130627, end: 20130904

REACTIONS (3)
  - Bronchiectasis [Unknown]
  - Latent tuberculosis [Recovered/Resolved]
  - Moraxella infection [Unknown]
